FAERS Safety Report 6604986-6 (Version None)
Quarter: 2010Q1

REPORT INFORMATION
  Report Type: 
  Country: None (occurrence: None)
  Receive Date: 20100219
  Receipt Date: 20100210
  Transmission Date: 20100710
  Serious: Yes (Other)
  Sender: FDA-Public Use
  Company Number: 390001M10RUS

PATIENT
  Age: 35 Year
  Sex: Female
  Weight: 60 kg

DRUGS (2)
  1. CETROTIDE [Suspect]
     Indication: OVULATION INDUCTION
     Dosage: 0.25 MG, 1 IN 1 DAYS, SUBCUTANEOUS
     Route: 058
     Dates: start: 20100209, end: 20100209
  2. MENOPUR [Concomitant]

REACTIONS (3)
  - DIZZINESS [None]
  - HYPOAESTHESIA [None]
  - PALPITATIONS [None]
